FAERS Safety Report 18051384 (Version 1)
Quarter: 2020Q3

REPORT INFORMATION
  Report Type: Spontaneous
  Country: US (occurrence: US)
  Receive Date: 20200722
  Receipt Date: 20200722
  Transmission Date: 20201103
  Serious: No
  Sender: FDA-Public Use
  Company Number: US-AMGEN-USASP2020116114

PATIENT
  Sex: Female

DRUGS (5)
  1. ENBREL [Suspect]
     Active Substance: ETANERCEPT
     Indication: SARCOIDOSIS
     Dosage: UNK
     Route: 065
  2. METHOTREXATE SODIUM. [Suspect]
     Active Substance: METHOTREXATE SODIUM
     Indication: SARCOIDOSIS
     Dosage: 12.5 MG, WEEKLY
     Route: 065
  3. ENBREL [Suspect]
     Active Substance: ETANERCEPT
     Indication: UVEITIS
     Dosage: UNK
     Route: 065
  4. HYDROXYCHLOROQUINE [Suspect]
     Active Substance: HYDROXYCHLOROQUINE
     Indication: SARCOIDOSIS
     Dosage: 100 MG, 2X/DAY
     Route: 065
  5. ISOTRETINOIN. [Suspect]
     Active Substance: ISOTRETINOIN
     Indication: SARCOIDOSIS
     Dosage: UNK
     Route: 065

REACTIONS (3)
  - Drug ineffective for unapproved indication [Unknown]
  - Toxicity to various agents [Unknown]
  - Off label use [Unknown]
